FAERS Safety Report 25299180 (Version 1)
Quarter: 2025Q2

REPORT INFORMATION
  Report Type: Spontaneous
  Country: US (occurrence: US)
  Receive Date: 20250512
  Receipt Date: 20250512
  Transmission Date: 20250717
  Serious: Yes (Life-Threatening, Hospitalization, Other)
  Sender: DR REDDYS
  Company Number: US-DRL-USA-USA/2025/05/006763

PATIENT
  Age: 67 Year
  Sex: Male

DRUGS (16)
  1. PHENYLEPHRINE [Suspect]
     Active Substance: PHENYLEPHRINE
     Indication: Cytokine release syndrome
     Dosage: ON DAY 21, 300 MCG/MIN, ON DAY 22, 300 MCG/MIN
  2. NOREPINEPHRINE [Concomitant]
     Active Substance: NOREPINEPHRINE
     Indication: Cytokine release syndrome
     Dosage: INITIAL DOSE 2 MCG/MIN
  3. NOREPINEPHRINE [Concomitant]
     Active Substance: NOREPINEPHRINE
  4. VASOPRESSIN [Concomitant]
     Active Substance: VASOPRESSIN
     Indication: Cytokine release syndrome
  5. VASOPRESSIN [Concomitant]
     Active Substance: VASOPRESSIN
  6. VASOPRESSIN [Concomitant]
     Active Substance: VASOPRESSIN
  7. VASOPRESSIN [Concomitant]
     Active Substance: VASOPRESSIN
  8. VASOPRESSIN [Concomitant]
     Active Substance: VASOPRESSIN
  9. RIMIDUCID [Concomitant]
     Active Substance: RIMIDUCID
     Indication: Cytokine release syndrome
     Dosage: BPX-601 CLINICAL TRIAL USING AUTOLOGOUS PROSTATE STEM CELL ANTIGEN (PSCA)-TARGETED CAR-T CELLS WITH
  10. TOCILIZUMAB [Concomitant]
     Active Substance: TOCILIZUMAB
     Indication: Cytokine release syndrome
  11. DEXAMETHASONE [Concomitant]
     Active Substance: DEXAMETHASONE
     Indication: Cytokine release syndrome
     Dosage: DEXAMETHASONE 10MG EVERY SIX HOURS
  12. DEXAMETHASONE [Concomitant]
     Active Substance: DEXAMETHASONE
  13. SILTUXIMAB [Concomitant]
     Active Substance: SILTUXIMAB
     Indication: Cytokine release syndrome
  14. METHYLPREDNISOLONE [Concomitant]
     Active Substance: METHYLPREDNISOLONE
     Indication: Cytokine release syndrome
     Dosage: 1G TWICE DAILY
  15. ANAKINRA [Concomitant]
     Active Substance: ANAKINRA
     Indication: Cytokine release syndrome
     Dosage: 200MG EVERY 6 HOURS ON DAY +21
  16. RUXOLITINIB [Concomitant]
     Active Substance: RUXOLITINIB
     Indication: Cytokine release syndrome
     Dosage: 10MG TWICE DAILY

REACTIONS (1)
  - Drug ineffective for unapproved indication [Unknown]
